FAERS Safety Report 14556887 (Version 1)
Quarter: 2018Q1

REPORT INFORMATION
  Report Type: Spontaneous
  Country: GB (occurrence: GB)
  Receive Date: 20180221
  Receipt Date: 20180221
  Transmission Date: 20180509
  Serious: Yes (Other)
  Sender: FDA-Public Use
  Company Number: GB-TEVA-2018-GB-857623

PATIENT
  Age: 25 Year
  Sex: Male

DRUGS (1)
  1. COPAXONE [Suspect]
     Active Substance: GLATIRAMER ACETATE
     Route: 058
     Dates: start: 20170623

REACTIONS (14)
  - Gait inability [Unknown]
  - Erythema [Unknown]
  - Gait disturbance [Unknown]
  - Balance disorder [Unknown]
  - Dyspnoea [Unknown]
  - Diplopia [Unknown]
  - Asthenia [Unknown]
  - Erythema [Unknown]
  - Burning sensation [Unknown]
  - Chest discomfort [Unknown]
  - Vomiting [Unknown]
  - Exophthalmos [Unknown]
  - Headache [Unknown]
  - Dizziness [Unknown]

NARRATIVE: CASE EVENT DATE: 20170908
